FAERS Safety Report 11779152 (Version 2)
Quarter: 2016Q1

REPORT INFORMATION
  Report Type: Spontaneous
  Country: US (occurrence: US)
  Receive Date: 20151125
  Receipt Date: 20160330
  Transmission Date: 20160525
  Serious: Yes (Hospitalization, Other)
  Sender: FDA-Public Use
  Company Number: US-MDT-ADR-2015-02242

PATIENT
  Age: 56 Year
  Sex: Female

DRUGS (22)
  1. BACLOFEN. [Suspect]
     Active Substance: BACLOFEN
  2. REGLAN [Suspect]
     Active Substance: METOCLOPRAMIDE HYDROCHLORIDE
  3. DILAUDID [Suspect]
     Active Substance: HYDROMORPHONE HYDROCHLORIDE
  4. DITROPAN [Suspect]
     Active Substance: OXYBUTYNIN CHLORIDE
  5. PRIMIDONE. [Suspect]
     Active Substance: PRIMIDONE
  6. VISTARIL [Suspect]
     Active Substance: HYDROXYZINE PAMOATE
  7. MAGNESIUM [Suspect]
     Active Substance: MAGNESIUM
  8. COMPOUNDED PAIN CREAM [Suspect]
     Active Substance: UNSPECIFIED INGREDIENT
  9. MIDODRINE [Suspect]
     Active Substance: MIDODRINE
  10. COQ10 [Suspect]
     Active Substance: UBIDECARENONE
  11. RESTORIL [Suspect]
     Active Substance: TEMAZEPAM
  12. THYROID [Suspect]
     Active Substance: LEVOTHYROXINE\LIOTHYRONINE
  13. NORCO [Suspect]
     Active Substance: ACETAMINOPHEN\HYDROCODONE BITARTRATE
  14. TOPAMAX [Suspect]
     Active Substance: TOPIRAMATE
  15. LIPITOR [Suspect]
     Active Substance: ATORVASTATIN CALCIUM
  16. OXCARBAZEPINE. [Suspect]
     Active Substance: OXCARBAZEPINE
  17. POTASSIUM [Suspect]
     Active Substance: POTASSIUM
  18. ATROVENT [Suspect]
     Active Substance: IPRATROPIUM BROMIDE
  19. COMPOUNDED BACLOFEN [Suspect]
     Active Substance: BACLOFEN
     Dosage: 325 MCG/DAY
     Route: 037
  20. LASIX [Suspect]
     Active Substance: FUROSEMIDE
  21. XARELTO [Suspect]
     Active Substance: RIVAROXABAN
  22. NTG [Suspect]
     Active Substance: NITROGLYCERIN

REACTIONS (2)
  - Drug withdrawal syndrome [None]
  - Device malfunction [None]
